FAERS Safety Report 7499391-7 (Version None)
Quarter: 2011Q2

REPORT INFORMATION
  Report Type: 
  Country: None (occurrence: None)
  Receive Date: 20110524
  Receipt Date: 20110518
  Transmission Date: 20111010
  Serious: Yes (Other)
  Sender: FDA-Public Use
  Company Number: FI-AMGEN-FINSP2011025938

PATIENT
  Age: 52 Year
  Sex: Male

DRUGS (3)
  1. HUMIRA [Suspect]
     Dosage: UNK
     Dates: start: 20070101
  2. ENBREL [Suspect]
     Indication: PRODUCT USED FOR UNKNOWN INDICATION
     Dosage: UNK
     Dates: start: 20040501, end: 20070101
  3. METHOTREXATE SODIUM [Suspect]
     Dosage: 10 MG, WEEKLY

REACTIONS (3)
  - HYPOTENSION [None]
  - PROTEINURIA [None]
  - IRITIS [None]
